FAERS Safety Report 17885626 (Version 1)
Quarter: 2020Q2

REPORT INFORMATION
  Report Type: Report from Study
  Country: US (occurrence: US)
  Receive Date: 20200611
  Receipt Date: 20200611
  Transmission Date: 20200714
  Serious: Yes (Other)
  Sender: FDA-Public Use
  Company Number: NVSC2020US158953

PATIENT

DRUGS (8)
  1. BLINDED NO TREATMENT RECEIVED [Suspect]
     Active Substance: INVESTIGATIONAL PRODUCT
     Indication: CARDIAC FAILURE
     Dosage: CODE NOT BROKEN
     Route: 042
     Dates: start: 20200513
  2. BLINDED ACZ885 [Suspect]
     Active Substance: CANAKINUMAB
     Indication: CARDIAC FAILURE
     Dosage: CODE NOT BROKEN
     Route: 042
     Dates: start: 20200513
  3. BLINDED ACZ885 [Suspect]
     Active Substance: CANAKINUMAB
     Indication: RESPIRATORY FAILURE
  4. BLINDED ACZ885 [Suspect]
     Active Substance: CANAKINUMAB
     Indication: RESPIRATORY FAILURE
  5. BLINDED ACZ885 [Suspect]
     Active Substance: CANAKINUMAB
     Indication: CARDIAC FAILURE
     Dosage: CODE NOT BROKEN
     Route: 042
     Dates: start: 20200513
  6. PLACEBO [Suspect]
     Active Substance: UNSPECIFIED INGREDIENT
     Indication: CARDIAC FAILURE
     Dosage: CODE NOT BROKEN
     Route: 042
     Dates: start: 20200513
  7. BLINDED NO TREATMENT RECEIVED [Suspect]
     Active Substance: INVESTIGATIONAL PRODUCT
     Indication: RESPIRATORY FAILURE
  8. PLACEBO [Suspect]
     Active Substance: UNSPECIFIED INGREDIENT
     Indication: RESPIRATORY FAILURE

REACTIONS (3)
  - Hepatic enzyme increased [Not Recovered/Not Resolved]
  - Hypoxia [Not Recovered/Not Resolved]
  - Renal injury [Not Recovered/Not Resolved]

NARRATIVE: CASE EVENT DATE: 20200514
